FAERS Safety Report 20940643 (Version 2)
Quarter: 2022Q2

REPORT INFORMATION
  Report Type: Spontaneous
  Country: NL (occurrence: NL)
  Receive Date: 20220609
  Receipt Date: 20220621
  Transmission Date: 20220721
  Serious: Yes (Other)
  Sender: FDA-Public Use
  Company Number: None

PATIENT
  Sex: Male
  Weight: 105 kg

DRUGS (1)
  1. BIKTARVY [Suspect]
     Active Substance: BICTEGRAVIR SODIUM\EMTRICITABINE\TENOFOVIR ALAFENAMIDE FUMARATE
     Indication: HIV infection
     Dosage: TABLET, 50/200/25 MG (MILLIGRAM),
     Route: 065
     Dates: start: 2019, end: 20220404

REACTIONS (3)
  - Steatohepatitis [Unknown]
  - Hepatic fibrosis [Unknown]
  - Weight increased [Unknown]
